FAERS Safety Report 23262868 (Version 4)
Quarter: 2024Q1

REPORT INFORMATION
  Report Type: Report from Study
  Country: CN (occurrence: CN)
  Receive Date: 20231205
  Receipt Date: 20240311
  Transmission Date: 20240410
  Serious: Yes (Death, Other)
  Sender: FDA-Public Use
  Company Number: CN-TAKEDA-2023TUS116114

PATIENT
  Age: 79 Year
  Sex: Female

DRUGS (2)
  1. BRENTUXIMAB VEDOTIN [Suspect]
     Active Substance: BRENTUXIMAB VEDOTIN
     Indication: Peripheral T-cell lymphoma unspecified
     Dosage: 81 MILLIGRAM
     Route: 041
     Dates: start: 20230928
  2. BRENTUXIMAB VEDOTIN [Suspect]
     Active Substance: BRENTUXIMAB VEDOTIN
     Dosage: 77 MILLIGRAM
     Route: 041
     Dates: start: 20231122

REACTIONS (5)
  - Non-Hodgkin^s lymphoma [Fatal]
  - Myelosuppression [Recovered/Resolved]
  - Lymphadenopathy [Not Recovered/Not Resolved]
  - Haematoma [Recovered/Resolved]
  - Off label use [Recovered/Resolved]

NARRATIVE: CASE EVENT DATE: 20230928
